FAERS Safety Report 6613815-6 (Version None)
Quarter: 2010Q1

REPORT INFORMATION
  Report Type: 
  Country: None (occurrence: None)
  Receive Date: 20100225
  Receipt Date: 20100211
  Transmission Date: 20100710
  Serious: Yes (Hospitalization)
  Sender: FDA-Public Use
  Company Number: DSJ-2010-02345

PATIENT
  Age: 68 Year
  Sex: Female

DRUGS (3)
  1. BENICAR [Suspect]
     Indication: HYPERTENSION
     Dosage: 40 MG (40 MG,1 IN 1 D),PER ORAL ; HALF A 40MG TAB/DAY (20 MG,1 IN 1 D),PER ORAL
     Route: 048
     Dates: start: 20091223, end: 20100114
  2. BENICAR [Suspect]
     Indication: HYPERTENSION
     Dosage: 40 MG (40 MG,1 IN 1 D),PER ORAL ; HALF A 40MG TAB/DAY (20 MG,1 IN 1 D),PER ORAL
     Route: 048
     Dates: start: 20100115
  3. ACETYLSALICYLIC ACID SRT [Concomitant]

REACTIONS (2)
  - HYPERTENSION [None]
  - HYPOTENSION [None]
